FAERS Safety Report 7509082-1 (Version None)
Quarter: 2011Q2

REPORT INFORMATION
  Report Type: 
  Country: None (occurrence: None)
  Receive Date: 20110527
  Receipt Date: 20110523
  Transmission Date: 20111010
  Serious: Yes (Other)
  Sender: FDA-Public Use
  Company Number: HR-PFIZER INC-2011111744

PATIENT
  Sex: Female

DRUGS (3)
  1. ANAKINRA [Suspect]
     Indication: SCHNITZLER'S SYNDROME
     Dosage: UNK
  2. DOXYCYLINE HYCLATE [Suspect]
     Indication: SCHNITZLER'S SYNDROME
     Dosage: 2 - 100 MG
     Route: 048
  3. CIPROFLOXACIN [Suspect]
     Indication: SCHNITZLER'S SYNDROME
     Dosage: 2 X 500 MG
     Route: 048

REACTIONS (1)
  - HEPATIC LESION [None]
